FAERS Safety Report 22223300 (Version 1)
Quarter: 2023Q2

REPORT INFORMATION
  Report Type: Spontaneous
  Country: US (occurrence: None)
  Receive Date: 20230415
  Receipt Date: 20230415
  Transmission Date: 20230721
  Serious: No
  Sender: FDA-Public Use
  Company Number: None

PATIENT
  Age: 78 Year
  Sex: Male
  Weight: 88.7 kg

DRUGS (1)
  1. CISPLATIN [Suspect]
     Active Substance: CISPLATIN
     Dates: start: 20230314

REACTIONS (8)
  - Fall [None]
  - Dizziness [None]
  - Dizziness [None]
  - Skin laceration [None]
  - Contusion [None]
  - Dizziness postural [None]
  - Syncope [None]
  - Blood pressure orthostatic decreased [None]

NARRATIVE: CASE EVENT DATE: 20230413
